FAERS Safety Report 6145195-7 (Version None)
Quarter: 2009Q2

REPORT INFORMATION
  Report Type: 
  Country: None (occurrence: None)
  Receive Date: 20090406
  Receipt Date: 20090403
  Transmission Date: 20091009
  Serious: Yes (Life-Threatening, Hospitalization)
  Sender: FDA-Public Use
  Company Number: CH-JNJFOC-20090204855

PATIENT
  Age: 70 Year
  Sex: Male

DRUGS (16)
  1. RISPERDAL [Suspect]
     Indication: PERSONALITY DISORDER
     Route: 048
  2. CLOPIXOL [Interacting]
     Indication: ABNORMAL BEHAVIOUR
     Route: 048
  3. CLOPIXOL [Interacting]
     Indication: PERSONALITY DISORDER
     Route: 048
  4. VALPROIC ACID [Interacting]
     Indication: DRUG USE FOR UNKNOWN INDICATION
     Route: 065
  5. CALCIMAGON D3 [Concomitant]
     Route: 048
  6. INSULIN MIXTARD [Concomitant]
     Route: 065
  7. SINGULAIR [Concomitant]
     Route: 048
  8. ASPIRIN [Concomitant]
     Route: 048
  9. PRADIF T [Concomitant]
     Route: 048
  10. LASIX [Concomitant]
     Route: 048
  11. ALDACTONE [Concomitant]
     Route: 048
  12. MAGNESIOCARD ORANGE [Concomitant]
     Route: 065
  13. OMEPRAZOLE [Concomitant]
     Route: 065
  14. PREDNISONE [Concomitant]
     Route: 065
  15. REMINYL [Concomitant]
     Route: 065
  16. ISOPHANE [Concomitant]
     Route: 065

REACTIONS (6)
  - ABDOMINAL PAIN [None]
  - DRUG INTERACTION [None]
  - NEUROLEPTIC MALIGNANT SYNDROME [None]
  - PERSONALITY CHANGE [None]
  - SOMNOLENCE [None]
  - URINARY INCONTINENCE [None]
